FAERS Safety Report 5038561-4 (Version None)
Quarter: 2006Q2

REPORT INFORMATION
  Report Type: 
  Country: None (occurrence: None)
  Receive Date: 20060629
  Receipt Date: 20060621
  Transmission Date: 20061013
  Serious: Yes (Death)
  Sender: FDA-Public Use
  Company Number: JP-AVENTIS-200611916JP

PATIENT

DRUGS (1)
  1. TAXOTERE [Suspect]
     Indication: NEOPLASM MALIGNANT
     Route: 041

REACTIONS (4)
  - CHEST PAIN [None]
  - DYSPNOEA [None]
  - MULTI-ORGAN FAILURE [None]
  - NEUTROPHIL COUNT DECREASED [None]
